FAERS Safety Report 10249162 (Version 1)
Quarter: 2014Q2

REPORT INFORMATION
  Report Type: Spontaneous
  Country: US (occurrence: None)
  Receive Date: 20140619
  Receipt Date: 20140619
  Transmission Date: 20141212
  Serious: Yes (Life-Threatening, Disabling, Other)
  Sender: FDA-Public Use
  Company Number: None

PATIENT
  Age: 50 Year
  Sex: Male
  Weight: 127.01 kg

DRUGS (1)
  1. HCTZ [Suspect]
     Indication: HYPERTENSION
     Dosage: 1 ONCE DAILY
     Route: 048

REACTIONS (8)
  - Loss of consciousness [None]
  - Blood pressure decreased [None]
  - Disorientation [None]
  - Thinking abnormal [None]
  - Arthralgia [None]
  - Mental disorder [None]
  - Synovial disorder [None]
  - Joint injury [None]
